FAERS Safety Report 16962799 (Version 1)
Quarter: 2019Q4

REPORT INFORMATION
  Report Type: Spontaneous
  Country: TW (occurrence: TW)
  Receive Date: 20191025
  Receipt Date: 20191025
  Transmission Date: 20200122
  Serious: Yes (Other)
  Sender: FDA-Public Use
  Company Number: TW-ASTRAZENECA-2019SF50609

PATIENT
  Age: 609 Month
  Sex: Female
  Weight: 55.2 kg

DRUGS (14)
  1. TAMOXIFEN [Suspect]
     Active Substance: TAMOXIFEN
     Indication: METASTASES TO BONE
     Route: 048
     Dates: start: 201903, end: 201904
  2. IBRANCE [Suspect]
     Active Substance: PALBOCICLIB
     Route: 048
     Dates: start: 20190709
  3. OXYCODONE [Concomitant]
     Active Substance: OXYCODONE
     Dates: start: 20190621
  4. FULVESTRANT. [Concomitant]
     Active Substance: FULVESTRANT
     Dates: start: 20190627
  5. FASLODEX [Suspect]
     Active Substance: FULVESTRANT
     Indication: BREAST CANCER
     Route: 030
     Dates: start: 20190426
  6. CLODRONATE DISOD [Concomitant]
     Dates: start: 20190628
  7. IBRANCE [Suspect]
     Active Substance: PALBOCICLIB
     Route: 048
     Dates: start: 20190621
  8. ESTAZOLAM AMEL [Concomitant]
     Dates: start: 20190621
  9. ZOLADEX [Suspect]
     Active Substance: GOSERELIN ACETATE
     Indication: BREAST CANCER
     Route: 058
     Dates: start: 20190426
  10. TAMOXIFEN [Suspect]
     Active Substance: TAMOXIFEN
     Indication: FUNGATING WOUND
     Route: 048
     Dates: start: 201903, end: 201904
  11. IBRANCE [Suspect]
     Active Substance: PALBOCICLIB
     Route: 048
     Dates: start: 20190829
  12. TAMOXIFEN [Suspect]
     Active Substance: TAMOXIFEN
     Indication: METASTASES TO LIVER
     Route: 048
     Dates: start: 201903, end: 201904
  13. FUROSEMIDE. [Concomitant]
     Active Substance: FUROSEMIDE
     Dates: start: 20190701
  14. TAMOXIFEN [Suspect]
     Active Substance: TAMOXIFEN
     Indication: BREAST CANCER METASTATIC
     Route: 048
     Dates: start: 201903, end: 201904

REACTIONS (4)
  - Hypercalcaemia [Recovered/Resolved]
  - Blood parathyroid hormone decreased [Unknown]
  - White blood cell count decreased [Unknown]
  - Malignant neoplasm progression [Unknown]

NARRATIVE: CASE EVENT DATE: 201902
